FAERS Safety Report 21098704 (Version 3)
Quarter: 2022Q3

REPORT INFORMATION
  Report Type: Report from Study
  Country: AU (occurrence: AU)
  Receive Date: 20220719
  Receipt Date: 20220828
  Transmission Date: 20221026
  Serious: Yes (Hospitalization)
  Sender: FDA-Public Use
  Company Number: AU-BRISTOL-MYERS SQUIBB COMPANY-2022-064080

PATIENT
  Age: 72 Year
  Sex: Male
  Weight: 73 kg

DRUGS (10)
  1. NIVOLUMAB [Suspect]
     Active Substance: NIVOLUMAB
     Indication: Gastrooesophageal cancer
     Route: 042
     Dates: start: 20220316, end: 20220511
  2. NIVOLUMAB [Suspect]
     Active Substance: NIVOLUMAB
     Dosage: DUE C4D15 NIVOLUMAB
     Route: 065
     Dates: start: 20220622
  3. REGORAFENIB [Suspect]
     Active Substance: REGORAFENIB
     Indication: Gastrooesophageal cancer
     Route: 048
     Dates: start: 20220316, end: 20220601
  4. REGORAFENIB [Suspect]
     Active Substance: REGORAFENIB
     Dosage: STOPPED REGORAFANIB ON 8-JUN-2022 DUE TO HB 97 AND PLATELETS 40
     Route: 065
     Dates: start: 20220608
  5. PANTOPRAZOLE [Concomitant]
     Active Substance: PANTOPRAZOLE
     Indication: Product used for unknown indication
     Dosage: FOR UNDERLYING DISEASE
     Route: 048
     Dates: start: 20191201
  6. ACETAMINOPHEN [Concomitant]
     Active Substance: ACETAMINOPHEN
     Indication: Prophylaxis
     Dosage: 3 IN 1 DAY
     Route: 048
     Dates: start: 20210820
  7. METOCLOPRAMIDE [Concomitant]
     Active Substance: METOCLOPRAMIDE
     Indication: Prophylaxis
     Dosage: PRN
     Route: 048
     Dates: start: 20200519
  8. IBUPROFEN [Concomitant]
     Active Substance: IBUPROFEN
     Indication: Chronic disease
     Dosage: PRN
     Route: 048
     Dates: start: 20220413
  9. CHOLECALCIFEROL [Concomitant]
     Active Substance: CHOLECALCIFEROL
     Indication: Prophylaxis
     Route: 048
     Dates: start: 20200101
  10. MOVICOL [Concomitant]
     Active Substance: POLYETHYLENE GLYCOL 3350\POTASSIUM CHLORIDE\SODIUM BICARBONATE\SODIUM CHLORIDE
     Indication: Prophylaxis
     Dosage: 1 SACHET, PRN
     Route: 048
     Dates: start: 20210723

REACTIONS (2)
  - Platelet count decreased [Recovered/Resolved]
  - Oedema peripheral [Unknown]

NARRATIVE: CASE EVENT DATE: 20220608
